FAERS Safety Report 9438386 (Version 1)
Quarter: 2013Q3

REPORT INFORMATION
  Report Type: Spontaneous
  Country: US (occurrence: US)
  Receive Date: 20130802
  Receipt Date: 20130802
  Transmission Date: 20140515
  Serious: No
  Sender: FDA-Public Use
  Company Number: US-BRISTOL-MYERS SQUIBB COMPANY-17042961

PATIENT
  Age: 75 Year
  Sex: Female
  Weight: 68.48 kg

DRUGS (3)
  1. COUMADIN [Suspect]
     Indication: ATRIAL FIBRILLATION
     Dosage: 1DF = 4MG DAILY EXCEPT(MON,WED AND FRIDAYS); SHE TAKES ONE-HALF OF A 4MG PILL (2MG) DAILY ON
     Dates: start: 201204
  2. VITAMINS [Concomitant]
  3. TOPROL [Concomitant]
     Dosage: STRENGTH:TOPROL SR

REACTIONS (2)
  - Low density lipoprotein increased [Unknown]
  - Blood triglycerides increased [Unknown]
